FAERS Safety Report 8392737-7 (Version None)
Quarter: 2012Q2

REPORT INFORMATION
  Report Type: 
  Country: None (occurrence: None)
  Receive Date: 20120529
  Receipt Date: 20120529
  Transmission Date: 20120825
  Serious: Yes (Other)
  Sender: FDA-Public Use
  Company Number: DE-BAYER-2012-052551

PATIENT

DRUGS (1)
  1. CIPROFLOXACIN [Suspect]
     Dosage: UNK
     Dates: start: 20120201, end: 20120201

REACTIONS (2)
  - TENDONITIS [None]
  - MUSCLE STRAIN [None]
